FAERS Safety Report 25467443 (Version 1)
Quarter: 2025Q2

REPORT INFORMATION
  Report Type: Report from Study
  Country: US (occurrence: US)
  Receive Date: 20250623
  Receipt Date: 20250623
  Transmission Date: 20250716
  Serious: Yes (Other)
  Sender: RANBAXY
  Company Number: US-SUN PHARMACEUTICAL INDUSTRIES INC-2024R1-434869

PATIENT
  Age: 28 Year
  Sex: Female

DRUGS (3)
  1. CLOZAPINE [Suspect]
     Active Substance: CLOZAPINE
     Indication: Psychotic disorder
     Route: 065
     Dates: start: 20221014
  2. CLOZAPINE [Suspect]
     Active Substance: CLOZAPINE
     Indication: Mood swings
  3. CLOZAPINE [Suspect]
     Active Substance: CLOZAPINE
     Indication: Intentional self-injury

REACTIONS (2)
  - Neutropenia [Unknown]
  - Off label use [Unknown]

NARRATIVE: CASE EVENT DATE: 20250606
